FAERS Safety Report 18420167 (Version 5)
Quarter: 2024Q3

REPORT INFORMATION
  Report Type: Spontaneous
  Country: FR (occurrence: FR)
  Receive Date: 20201023
  Receipt Date: 20240821
  Transmission Date: 20241017
  Serious: Yes (Hospitalization, Other)
  Sender: NOVARTIS
  Company Number: NVSC2020FR272415

PATIENT
  Age: 51 Year
  Sex: Female

DRUGS (7)
  1. SECUKINUMAB [Suspect]
     Active Substance: SECUKINUMAB
     Indication: Psoriasis
     Dosage: UNK
     Route: 065
     Dates: start: 2016
  2. SECUKINUMAB [Suspect]
     Active Substance: SECUKINUMAB
     Indication: Psoriatic arthropathy
     Dosage: UNK
     Route: 065
     Dates: start: 201609
  3. PREDNISONE [Suspect]
     Active Substance: PREDNISONE
     Indication: Psoriasis
     Dosage: 5-20 MG/DAY
     Route: 065
  4. PREDNISONE [Suspect]
     Active Substance: PREDNISONE
     Indication: Psoriatic arthropathy
  5. IXEKIZUMAB [Suspect]
     Active Substance: IXEKIZUMAB
     Indication: Psoriasis
     Dosage: 80 MG
     Route: 058
     Dates: start: 201803
  6. IXEKIZUMAB [Suspect]
     Active Substance: IXEKIZUMAB
     Indication: Psoriatic arthropathy
  7. SUMATRIPTAN [Concomitant]
     Active Substance: SUMATRIPTAN\SUMATRIPTAN SUCCINATE
     Indication: Evidence based treatment
     Dosage: UNK
     Route: 065

REACTIONS (8)
  - Cerebral venous thrombosis [Recovered/Resolved]
  - Headache [Recovered/Resolved]
  - Meningoradiculitis [Recovered/Resolved]
  - Deafness [Recovering/Resolving]
  - IVth nerve paralysis [Recovered/Resolved]
  - Facial paralysis [Recovering/Resolving]
  - Varicella zoster virus infection [Recovered/Resolved]
  - Drug ineffective [Unknown]
